FAERS Safety Report 12722762 (Version 1)
Quarter: 2016Q3

REPORT INFORMATION
  Report Type: Spontaneous
  Country: US (occurrence: US)
  Receive Date: 20160907
  Receipt Date: 20160907
  Transmission Date: 20161109
  Serious: Yes (Other)
  Sender: FDA-Public Use
  Company Number: US-BEH-2016073260

PATIENT
  Age: 58 Year
  Sex: Female
  Weight: 71.2 kg

DRUGS (19)
  1. HIZENTRA [Suspect]
     Active Substance: HUMAN IMMUNOGLOBULIN G
     Dosage: 8 UNK, UNK
     Route: 058
     Dates: start: 20160902
  2. ZOLOFT [Concomitant]
     Active Substance: SERTRALINE HYDROCHLORIDE
  3. SPIRONOLACTONE. [Concomitant]
     Active Substance: SPIRONOLACTONE
  4. TIZANIDINE. [Concomitant]
     Active Substance: TIZANIDINE
  5. TRAMADOL. [Concomitant]
     Active Substance: TRAMADOL
  6. EPIPEN [Concomitant]
     Active Substance: EPINEPHRINE
  7. FUROSEMIDE. [Concomitant]
     Active Substance: FUROSEMIDE
  8. NITROSTAT [Concomitant]
     Active Substance: NITROGLYCERIN
  9. SEROQUEL [Concomitant]
     Active Substance: QUETIAPINE FUMARATE
  10. PANTOPRAZOLE [Concomitant]
     Active Substance: PANTOPRAZOLE SODIUM
  11. RANEXA [Concomitant]
     Active Substance: RANOLAZINE
  12. POTASSIUM [Concomitant]
     Active Substance: POTASSIUM
  13. NITROFURANTOIN. [Concomitant]
     Active Substance: NITROFURANTOIN
  14. ACETAMINOPHEN. [Concomitant]
     Active Substance: ACETAMINOPHEN
  15. LEVOTHYROXINE. [Concomitant]
     Active Substance: LEVOTHYROXINE
  16. HIZENTRA [Suspect]
     Active Substance: HUMAN IMMUNOGLOBULIN G
     Indication: IMMUNODEFICIENCY COMMON VARIABLE
     Dosage: 8 G, QW
     Route: 058
     Dates: start: 20160706
  17. DIPHENHYDRAMINE. [Concomitant]
     Active Substance: DIPHENHYDRAMINE
  18. TOPIRAMATE. [Concomitant]
     Active Substance: TOPIRAMATE
  19. PROAIR HFA [Concomitant]
     Active Substance: ALBUTEROL SULFATE

REACTIONS (3)
  - Feeling abnormal [Unknown]
  - Thrombosis [Unknown]
  - Generalised oedema [Unknown]

NARRATIVE: CASE EVENT DATE: 20160902
